FAERS Safety Report 20622171 (Version 1)
Quarter: 2022Q1

REPORT INFORMATION
  Report Type: Spontaneous
  Country: FR (occurrence: FR)
  Receive Date: 20220322
  Receipt Date: 20220322
  Transmission Date: 20220423
  Serious: Yes (Disabling)
  Sender: FDA-Public Use
  Company Number: None

PATIENT
  Age: 58 Year
  Sex: Female

DRUGS (5)
  1. MIRENA [Suspect]
     Active Substance: LEVONORGESTREL
     Indication: Contraception
     Dosage: 20?G/DAY
     Route: 015
     Dates: start: 2005, end: 2020
  2. TRIPTORELIN [Suspect]
     Active Substance: TRIPTORELIN
     Indication: Endometriosis
     Dosage: UNK
     Route: 048
     Dates: start: 2005
  3. CHLORMADINONE ACETATE [Suspect]
     Active Substance: CHLORMADINONE ACETATE
     Indication: Endometriosis
     Dosage: UNK
     Route: 048
     Dates: start: 2003
  4. DUPHASTON [Suspect]
     Active Substance: DYDROGESTERONE
     Indication: Endometriosis
     Dosage: UNK
     Route: 048
  5. NOMEGESTROL ACETATE [Suspect]
     Active Substance: NOMEGESTROL ACETATE
     Indication: Endometriosis
     Dosage: UNK
     Route: 048
     Dates: start: 1995, end: 2002

REACTIONS (1)
  - Meningioma [Not Recovered/Not Resolved]

NARRATIVE: CASE EVENT DATE: 20150728
